FAERS Safety Report 4820961-6 (Version None)
Quarter: 2005Q4

REPORT INFORMATION
  Report Type: 
  Country: None (occurrence: None)
  Receive Date: 20051104
  Receipt Date: 20040804
  Transmission Date: 20060501
  Serious: Yes (Death, Hospitalization)
  Sender: FDA-Public Use
  Company Number: US-ROCHE-376875

PATIENT
  Age: 15 Year
  Sex: Male

DRUGS (1)
  1. ACCUTANE [Suspect]
     Indication: ACNE
     Route: 048
     Dates: start: 19980615, end: 19980615

REACTIONS (12)
  - ACNE [None]
  - AMNESIA [None]
  - ANAEMIA MACROCYTIC [None]
  - COMPLETED SUICIDE [None]
  - CROHN'S DISEASE [None]
  - DEPRESSION [None]
  - DIZZINESS [None]
  - HALLUCINATION [None]
  - IMMUNE SYSTEM DISORDER [None]
  - IRON DEFICIENCY ANAEMIA [None]
  - MUSCLE TIGHTNESS [None]
  - VISION BLURRED [None]
